FAERS Safety Report 5480196-3 (Version None)
Quarter: 2007Q4

REPORT INFORMATION
  Report Type: 
  Country: None (occurrence: None)
  Receive Date: 20071009
  Receipt Date: 20070927
  Transmission Date: 20080405
  Serious: Yes (Death, Life-Threatening, Hospitalization, Other)
  Sender: FDA-Public Use
  Company Number: CN-AVENTIS-200718527GDDC

PATIENT
  Age: 58 Year
  Sex: Male
  Weight: 43 kg

DRUGS (4)
  1. TAXOTERE [Suspect]
     Indication: NON-SMALL CELL LUNG CANCER
     Route: 042
     Dates: start: 20070814, end: 20070912
  2. CISPLATIN [Suspect]
     Indication: NON-SMALL CELL LUNG CANCER
     Route: 042
     Dates: start: 20070814, end: 20070912
  3. DEXAMETHASONE 0.5MG TAB [Suspect]
     Route: 041
     Dates: start: 20070912, end: 20070912
  4. DEXAMETHASONE 0.5MG TAB [Suspect]
     Route: 048
     Dates: start: 20070911, end: 20070911

REACTIONS (14)
  - ANAEMIA [None]
  - FATIGUE [None]
  - GRANULOCYTOPENIA [None]
  - HAEMATEMESIS [None]
  - HAEMORRHAGE [None]
  - HYPOKALAEMIA [None]
  - HYPOMAGNESAEMIA [None]
  - HYPONATRAEMIA [None]
  - HYPOTENSION [None]
  - HYPOXIA [None]
  - LEUKOPENIA [None]
  - LUNG INFECTION [None]
  - MELAENA [None]
  - THROMBOCYTOPENIA [None]
